FAERS Safety Report 12582905 (Version 8)
Quarter: 2016Q4

REPORT INFORMATION
  Report Type: Report from Study
  Country: US (occurrence: US)
  Receive Date: 20160722
  Receipt Date: 20161013
  Transmission Date: 20170207
  Serious: Yes (Hospitalization, Other)
  Sender: FDA-Public Use
  Company Number: US-GILEAD-2016-0223243

PATIENT
  Age: 69 Year
  Sex: Female

DRUGS (6)
  1. AMBRISENTAN [Suspect]
     Active Substance: AMBRISENTAN
     Indication: SCLERODERMA
  2. UPTRAVI [Suspect]
     Active Substance: SELEXIPAG
     Indication: PRODUCT USED FOR UNKNOWN INDICATION
     Dosage: UNK
     Route: 065
     Dates: start: 20160709
  3. REVATIO [Concomitant]
     Active Substance: SILDENAFIL CITRATE
  4. UPTRAVI [Suspect]
     Active Substance: SELEXIPAG
     Dosage: 1000 UG, BID
     Route: 065
  5. AMBRISENTAN [Suspect]
     Active Substance: AMBRISENTAN
     Indication: PULMONARY HYPERTENSION
     Dosage: 10 MG, QD
     Route: 065
     Dates: start: 20150709
  6. SILDENAFIL. [Concomitant]
     Active Substance: SILDENAFIL

REACTIONS (19)
  - Exercise lack of [Not Recovered/Not Resolved]
  - Ulcer [Unknown]
  - Blood potassium decreased [Unknown]
  - Right ventricular enlargement [Unknown]
  - Oedema [Unknown]
  - Fluid overload [Unknown]
  - Blood pressure decreased [Unknown]
  - Wheelchair user [Not Recovered/Not Resolved]
  - Fluid retention [Unknown]
  - Somnolence [Unknown]
  - Sinus tachycardia [Unknown]
  - Pulmonary hypertension [Unknown]
  - Unevaluable event [Unknown]
  - Urinary tract infection [Unknown]
  - Heart rate abnormal [Unknown]
  - Fatigue [Unknown]
  - Myocardial infarction [Unknown]
  - Tachycardia [Unknown]
  - Cystitis [Not Recovered/Not Resolved]

NARRATIVE: CASE EVENT DATE: 20160709
